FAERS Safety Report 6543454-7 (Version None)
Quarter: 2010Q1

REPORT INFORMATION
  Report Type: 
  Country: None (occurrence: None)
  Receive Date: 20100120
  Receipt Date: 20100114
  Transmission Date: 20100710
  Serious: Yes (Life-Threatening, Hospitalization)
  Sender: FDA-Public Use
  Company Number: A0840052A

PATIENT
  Sex: Male

DRUGS (8)
  1. TOPOTECAN [Suspect]
     Indication: EWING'S SARCOMA
     Dosage: 1.6MG CYCLIC
     Route: 042
     Dates: start: 20091214
  2. STUDY MEDICATION [Suspect]
     Indication: EWING'S SARCOMA
     Route: 042
     Dates: start: 20090810, end: 20091102
  3. CYCLOPHOSPHAMIDE [Suspect]
     Indication: EWING'S SARCOMA
     Dosage: 510MG PER DAY
     Route: 042
     Dates: start: 20091214
  4. RAPAMUNE [Concomitant]
     Indication: EWING'S SARCOMA
     Dosage: 8MG PER DAY
     Route: 048
     Dates: start: 20091005, end: 20091129
  5. MORPHINE [Concomitant]
     Indication: PAIN
     Dates: start: 20091209
  6. ORAMORPH SR [Concomitant]
     Indication: PAIN
     Dates: start: 20091209
  7. SYMBICORT [Concomitant]
     Indication: ASTHMA
     Dates: start: 20090210
  8. GABAPENTIN [Concomitant]
     Indication: PAIN
     Dates: start: 20091211

REACTIONS (3)
  - CEREBRAL HAEMORRHAGE [None]
  - COMA [None]
  - THROMBOCYTOPENIA [None]
